FAERS Safety Report 7031688-7 (Version None)
Quarter: 2010Q4

REPORT INFORMATION
  Report Type: 
  Country: None (occurrence: None)
  Receive Date: 20101001
  Receipt Date: 20100921
  Transmission Date: 20110411
  Serious: Yes (Life-Threatening)
  Sender: FDA-Public Use
  Company Number: 1000015966

PATIENT
  Age: 62 Year
  Sex: Female
  Weight: 60 kg

DRUGS (4)
  1. CITALOPRAM HYDROBROMIDE [Suspect]
     Dosage: 10 MG (10 MG, 1 IN 1 D), ORAL
     Route: 048
  2. PROPOFOL [Suspect]
     Dosage: 50 MG (50 MG, 1 IN 1 D), INTRAVENOUS (NOT OTHERWISE SPECIFIED)
     Route: 042
     Dates: start: 20100624, end: 20100624
  3. DORMICUM (TABLETS) [Suspect]
     Dosage: 7.5 MG (7.5 MG, 1 IN 1 D), ORAL
     Route: 048
     Dates: start: 20100624, end: 20100624
  4. FENTANYL [Suspect]
     Dosage: 0.15 MG (0.15 MG, 1 IN 1 D), INTRAVENOUS (NOT OTHERWISE SPECIFIED)
     Route: 042
     Dates: start: 20100624, end: 20100624

REACTIONS (2)
  - ATRIOVENTRICULAR BLOCK COMPLETE [None]
  - POTENTIATING DRUG INTERACTION [None]
